FAERS Safety Report 4644405-2 (Version None)
Quarter: 2005Q2

REPORT INFORMATION
  Report Type: 
  Country: None (occurrence: None)
  Receive Date: 20050331
  Receipt Date: 20041208
  Transmission Date: 20051028
  Serious: No
  Sender: FDA-Public Use
  Company Number: 04P-163-0283423-00

PATIENT
  Age: 60 Year
  Sex: Female
  Weight: 77.1115 kg

DRUGS (9)
  1. HUMIRA [Suspect]
     Indication: RHEUMATOID ARTHRITIS
     Dosage: 40 MG, 1 IN 2 WK, SUBCUTANEOUS
     Route: 058
     Dates: start: 20040401, end: 20041101
  2. LOTREL [Concomitant]
  3. RANITIDINE HYDROCHLORIDE [Concomitant]
  4. HYOSCAMINE (HYOSCYAMINE) [Concomitant]
  5. METOPROLOL SUCCINATE [Concomitant]
  6. NITROGLYCERIN [Concomitant]
  7. GLIBENCLAMIDE [Concomitant]
  8. ZOLPIDEM TARTRATE [Concomitant]
  9. COUMADIN [Concomitant]

REACTIONS (3)
  - INJECTION SITE PAIN [None]
  - RHEUMATOID ARTHRITIS [None]
  - SOMNOLENCE [None]
